FAERS Safety Report 6213602-7 (Version None)
Quarter: 2009Q2

REPORT INFORMATION
  Report Type: 
  Country: None (occurrence: None)
  Receive Date: 20090603
  Receipt Date: 20090526
  Transmission Date: 20091009
  Serious: Yes (Hospitalization)
  Sender: FDA-Public Use
  Company Number: FR-PFIZER INC-2009217830

PATIENT
  Age: 68 Year

DRUGS (11)
  1. TAHOR [Suspect]
     Dosage: 1 DF, 1X/DAY
  2. DI-HYDAN [Suspect]
  3. NIMOTOP [Suspect]
     Route: 048
  4. LOVENOX [Suspect]
     Dosage: 1 DF, 1X/DAY
     Route: 058
     Dates: start: 20081107, end: 20081219
  5. INIPOMP [Suspect]
     Dosage: UNK
     Dates: start: 20081118, end: 20081205
  6. MOPRAL [Suspect]
     Dosage: 1 DF, 1X/DAY
     Route: 048
     Dates: start: 20081205, end: 20081219
  7. XYZAL [Concomitant]
     Dosage: 1 DF, 1X/DAY
  8. XATRAL [Concomitant]
     Dosage: 1 DF, 1X/DAY
  9. POLARAMINE [Concomitant]
     Dosage: UNK
  10. TRAMADOL HCL [Concomitant]
     Dosage: UNK
     Dates: start: 20081201, end: 20081205
  11. PARACETAMOL [Concomitant]
     Dosage: UNK
     Dates: start: 20081118, end: 20081205

REACTIONS (1)
  - DRUG RASH WITH EOSINOPHILIA AND SYSTEMIC SYMPTOMS [None]
